FAERS Safety Report 5593847-X (Version None)
Quarter: 2008Q1

REPORT INFORMATION
  Report Type: 
  Country: None (occurrence: None)
  Receive Date: 20080116
  Receipt Date: 20080107
  Transmission Date: 20080703
  Serious: Yes (Hospitalization)
  Sender: FDA-Public Use
  Company Number: US-ELI_LILLY_AND_COMPANY-US200712002224

PATIENT
  Sex: Female

DRUGS (10)
  1. CYMBALTA [Suspect]
     Indication: DEPRESSION
     Dosage: 60 MG, 2/D
     Dates: start: 20071001
  2. CYMBALTA [Suspect]
     Dosage: 60 MG, 2/D ALONG WITH 30 MG BID FOR 180 MG TOTAL DAILY DOSE
     Dates: start: 20070101, end: 20070101
  3. CYMBALTA [Suspect]
     Dosage: 30 MG, 2/D ALONG WITH 60 MG BID FOR A TOTAL DAILY DOSE OF 180 MG
     Dates: start: 20070101, end: 20070101
  4. GLIPIZIDE [Concomitant]
  5. LASIX [Concomitant]
  6. MORPHINE SULFATE [Concomitant]
     Dosage: 15 MG, QID AS NEEDED
  7. FLEXERIL [Concomitant]
  8. AVAPRO [Concomitant]
     Dosage: 150 MG, DAILY (1/D)
  9. RELAFEN [Concomitant]
     Dosage: 1500 MG, DAILY (1/D)
  10. GLYBURIDE [Concomitant]
     Dosage: 5 MG, DAILY (1/D)

REACTIONS (12)
  - ABNORMAL BEHAVIOUR [None]
  - AGITATION [None]
  - BIPOLAR I DISORDER [None]
  - CONTUSION [None]
  - DRUG WITHDRAWAL SYNDROME [None]
  - EPISTAXIS [None]
  - FLIGHT OF IDEAS [None]
  - HAEMATOCRIT INCREASED [None]
  - HAEMOGLOBIN INCREASED [None]
  - INSOMNIA [None]
  - PSYCHOMOTOR HYPERACTIVITY [None]
  - SOMNOLENCE [None]
